FAERS Safety Report 10775044 (Version 3)
Quarter: 2015Q1

REPORT INFORMATION
  Report Type: Spontaneous
  Country: AU (occurrence: AU)
  Receive Date: 20150209
  Receipt Date: 20150327
  Transmission Date: 20150721
  Serious: Yes (Disabling, Other)
  Sender: FDA-Public Use
  Company Number: AU-JNJFOC-20150200149

PATIENT
  Age: 35 Year
  Sex: Male
  Weight: 139 kg

DRUGS (2)
  1. INVEGA SUSTENNA [Suspect]
     Active Substance: PALIPERIDONE PALMITATE
     Indication: SCHIZOAFFECTIVE DISORDER
     Route: 030
     Dates: start: 20141212
  2. INVEGA SUSTENNA [Suspect]
     Active Substance: PALIPERIDONE PALMITATE
     Indication: SCHIZOAFFECTIVE DISORDER
     Route: 030
     Dates: start: 20141217

REACTIONS (16)
  - Bradyphrenia [Recovering/Resolving]
  - Mental disorder [Recovering/Resolving]
  - Malaise [Recovering/Resolving]
  - Activities of daily living impaired [Recovering/Resolving]
  - Anxiety [Recovering/Resolving]
  - Depression [Recovering/Resolving]
  - Cold sweat [Recovering/Resolving]
  - Feeling abnormal [Recovering/Resolving]
  - Emotional poverty [Recovering/Resolving]
  - Breast enlargement [Recovering/Resolving]
  - Dyskinesia [Recovered/Resolved]
  - Akathisia [Recovering/Resolving]
  - Sexual dysfunction [Recovering/Resolving]
  - Dyskinesia [Recovering/Resolving]
  - Suicidal ideation [Recovering/Resolving]
  - Pyrexia [Recovering/Resolving]

NARRATIVE: CASE EVENT DATE: 201412
